FAERS Safety Report 7316108-7 (Version None)
Quarter: 2011Q1

REPORT INFORMATION
  Report Type: 
  Country: None (occurrence: None)
  Receive Date: 20110225
  Receipt Date: 20110218
  Transmission Date: 20110831
  Serious: Yes (Other)
  Sender: FDA-Public Use
  Company Number: TW-JNJFOC-20110207024

PATIENT
  Age: 64 Year
  Sex: Male

DRUGS (3)
  1. NICORETTE FRESHMINT 4MG GUM [Suspect]
     Indication: SMOKING CESSATION THERAPY
     Dosage: 7-8 PIECES OF GUM PER DAY (FIRST YEAR) THEN 5-6 PIECES PER DAY (SECOND YEAR)
     Route: 048
  2. ANTIHYPERTENSIVE (UNSPECIFIED) [Concomitant]
     Indication: HYPERTENSION
     Dosage: UNSPECIFIED
  3. NICORETTE FRESHMINT 2MG GUM [Suspect]
     Indication: SMOKING CESSATION THERAPY
     Dosage: 4-5 PIECES OF GUM PER DAY
     Route: 048

REACTIONS (2)
  - DEPENDENCE [None]
  - INCORRECT DRUG ADMINISTRATION DURATION [None]
